FAERS Safety Report 7033170-X (Version None)
Quarter: 2010Q4

REPORT INFORMATION
  Report Type: 
  Country: None (occurrence: None)
  Receive Date: 20101007
  Receipt Date: 20101005
  Transmission Date: 20110411
  Serious: Yes (Hospitalization)
  Sender: FDA-Public Use
  Company Number: A0884986A

PATIENT
  Age: 36 Year
  Sex: Female
  Weight: 126.1 kg

DRUGS (1)
  1. ALLI [Suspect]
     Route: 048
     Dates: start: 20091201, end: 20091224

REACTIONS (3)
  - DRUG ADMINISTRATION ERROR [None]
  - DRUG EXPOSURE DURING PREGNANCY [None]
  - PREMATURE RUPTURE OF MEMBRANES [None]
